FAERS Safety Report 4383562-2 (Version None)
Quarter: 2004Q2

REPORT INFORMATION
  Report Type: 
  Country: None (occurrence: None)
  Receive Date: 20040618
  Receipt Date: 20040603
  Transmission Date: 20050107
  Serious: Yes (Other)
  Sender: FDA-Public Use
  Company Number: 2004215661DE

PATIENT
  Age: 41 Year
  Sex: Female
  Weight: 68 kg

DRUGS (3)
  1. CELEBREX [Suspect]
     Indication: OSTEOARTHRITIS
     Dosage: 200 MG, BID, ORAL
     Route: 048
     Dates: start: 20020712, end: 20020925
  2. BLOPRESS (CANDESARTAN CILEXETIL) [Concomitant]
  3. INSUMAN (INSULIN HUMAN INJECTION, ISOPHANE, INSULIN ZINC PROTAMINE INJ [Concomitant]

REACTIONS (2)
  - LOCALISED OSTEOARTHRITIS [None]
  - PAIN EXACERBATED [None]
